FAERS Safety Report 10886018 (Version 2)
Quarter: 2015Q2

REPORT INFORMATION
  Report Type: Spontaneous
  Country: US (occurrence: US)
  Receive Date: 20150304
  Receipt Date: 20150409
  Transmission Date: 20150821
  Serious: Yes (Other)
  Sender: FDA-Public Use
  Company Number: US-TEVA-545160USA

PATIENT
  Age: 35 Year
  Sex: Female
  Weight: 48.58 kg

DRUGS (1)
  1. PARAGARD T 380A [Suspect]
     Active Substance: COPPER
     Indication: CONTRACEPTION
     Route: 063
     Dates: start: 20141015, end: 20150212

REACTIONS (3)
  - Menorrhagia [Unknown]
  - Exposure during breast feeding [Unknown]
  - Device dislocation [Recovered/Resolved]

NARRATIVE: CASE EVENT DATE: 20150205
